FAERS Safety Report 8969450 (Version 1)
Quarter: 2012Q4

REPORT INFORMATION
  Report Type: Spontaneous
  Country: US (occurrence: None)
  Receive Date: 20121210
  Receipt Date: 20121210
  Transmission Date: 20130627
  Serious: Yes (Other)
  Sender: FDA-Public Use
  Company Number: DSA_61167_2012

PATIENT
  Sex: Female
  Weight: 49.44 kg

DRUGS (8)
  1. XENAZINE (NOT SPECIFIED) [Suspect]
     Indication: DYSTONIA
     Route: 048
     Dates: end: 201211
  2. FLEXERIL /00428402/ [Concomitant]
  3. PROZAC [Concomitant]
  4. DEPO-PROVERA [Concomitant]
  5. PRILOSEC /00661201/ [Concomitant]
  6. ACYCLOVIR /00587301/ [Concomitant]
  7. ARTANE [Concomitant]
  8. METHADONE [Concomitant]

REACTIONS (5)
  - Weight decreased [None]
  - Movement disorder [None]
  - Depression [None]
  - Suicidal ideation [None]
  - Crying [None]
